FAERS Safety Report 25938101 (Version 1)
Quarter: 2025Q4

REPORT INFORMATION
  Report Type: Spontaneous
  Country: CN (occurrence: CN)
  Receive Date: 20251018
  Receipt Date: 20251018
  Transmission Date: 20260117
  Serious: Yes (Death, Other)
  Sender: SANOFI AVENTIS
  Company Number: CN-MLMSERVICE-20250928-PI655565-00249-3

PATIENT
  Age: 54 Year
  Sex: Male
  Weight: 44 kg

DRUGS (24)
  1. OXALIPLATIN [Suspect]
     Active Substance: OXALIPLATIN
     Indication: Colorectal cancer stage IV
     Dosage: 85 MG/M2, QCY, OVER 2 HOURS 4 CYCLES
     Route: 013
     Dates: start: 202311
  2. OXALIPLATIN [Suspect]
     Active Substance: OXALIPLATIN
     Indication: Metastases to muscle
  3. OXALIPLATIN [Suspect]
     Active Substance: OXALIPLATIN
     Indication: Metastases to pelvis
  4. OXALIPLATIN [Suspect]
     Active Substance: OXALIPLATIN
     Indication: Metastases to lymph nodes
  5. LEUCOVORIN [Suspect]
     Active Substance: LEUCOVORIN\LEUCOVORIN CALCIUM
     Indication: Colorectal cancer stage IV
     Dosage: 400 MG/M2, QCY, OVER 2 HOURS
     Route: 013
     Dates: start: 202311
  6. LEUCOVORIN [Suspect]
     Active Substance: LEUCOVORIN\LEUCOVORIN CALCIUM
     Indication: Metastases to muscle
  7. LEUCOVORIN [Suspect]
     Active Substance: LEUCOVORIN\LEUCOVORIN CALCIUM
     Indication: Metastases to pelvis
  8. LEUCOVORIN [Suspect]
     Active Substance: LEUCOVORIN\LEUCOVORIN CALCIUM
     Indication: Metastases to lymph nodes
  9. FLUOROURACIL [Suspect]
     Active Substance: FLUOROURACIL
     Indication: Colorectal cancer stage IV
     Dosage: 400 MG/M2, QCY, OVER 15 MINUTES
     Route: 013
     Dates: start: 202311
  10. FLUOROURACIL [Suspect]
     Active Substance: FLUOROURACIL
     Indication: Metastases to muscle
     Dosage: 2400 MG/M2, QCY, OVER 46 HOURS
     Route: 013
     Dates: start: 202311
  11. FLUOROURACIL [Suspect]
     Active Substance: FLUOROURACIL
     Indication: Metastases to pelvis
  12. FLUOROURACIL [Suspect]
     Active Substance: FLUOROURACIL
     Indication: Metastases to lymph nodes
  13. BEVACIZUMAB [Suspect]
     Active Substance: BEVACIZUMAB
     Indication: Colorectal cancer stage IV
     Dosage: 5 MG/KG, QCY, OVER 1 TO 1.5 HOURS
     Route: 013
     Dates: start: 202311
  14. BEVACIZUMAB [Suspect]
     Active Substance: BEVACIZUMAB
     Indication: Metastases to muscle
  15. BEVACIZUMAB [Suspect]
     Active Substance: BEVACIZUMAB
     Indication: Metastases to pelvis
  16. BEVACIZUMAB [Suspect]
     Active Substance: BEVACIZUMAB
     Indication: Metastases to lymph nodes
  17. DOXORUBICIN [Suspect]
     Active Substance: DOXORUBICIN
     Indication: Colorectal cancer stage IV
     Dosage: UNK
     Dates: start: 202311
  18. DOXORUBICIN [Suspect]
     Active Substance: DOXORUBICIN
     Indication: Metastases to muscle
  19. DOXORUBICIN [Suspect]
     Active Substance: DOXORUBICIN
     Indication: Metastases to pelvis
  20. DOXORUBICIN [Suspect]
     Active Substance: DOXORUBICIN
     Indication: Metastases to lymph nodes
  21. LIPIODOL [Concomitant]
     Active Substance: ETHIODIZED OIL
     Indication: Colorectal cancer stage IV
     Dosage: UNK
     Dates: start: 202311
  22. LIPIODOL [Concomitant]
     Active Substance: ETHIODIZED OIL
     Indication: Metastases to muscle
  23. LIPIODOL [Concomitant]
     Active Substance: ETHIODIZED OIL
     Indication: Metastases to pelvis
  24. LIPIODOL [Concomitant]
     Active Substance: ETHIODIZED OIL
     Indication: Metastases to lymph nodes

REACTIONS (3)
  - Respiratory tract infection [Fatal]
  - Fatigue [Fatal]
  - Respiratory failure [Fatal]
